FAERS Safety Report 6938588-9 (Version None)
Quarter: 2010Q3

REPORT INFORMATION
  Report Type: 
  Country: None (occurrence: None)
  Receive Date: 20100824
  Receipt Date: 20100812
  Transmission Date: 20110219
  Serious: Yes (Hospitalization)
  Sender: FDA-Public Use
  Company Number: MX-SANOFI-AVENTIS-2010SA048149

PATIENT
  Age: 70 Year
  Sex: Male

DRUGS (2)
  1. DRONEDARONE HCL [Suspect]
     Indication: ATRIAL FIBRILLATION
     Route: 048
     Dates: start: 20100801, end: 20100801
  2. DIOVAN HCT [Suspect]
     Dosage: DOSE:1 UNIT(S)
     Route: 048

REACTIONS (1)
  - RENAL FAILURE ACUTE [None]
